FAERS Safety Report 14236029 (Version 2)
Quarter: 2017Q4

REPORT INFORMATION
  Report Type: Spontaneous
  Country: FR (occurrence: FR)
  Receive Date: 20171129
  Receipt Date: 20171229
  Transmission Date: 20180321
  Serious: Yes (Other)
  Sender: FDA-Public Use
  Company Number: FR-MERCK KGAA-2036244

PATIENT
  Age: 53 Year
  Sex: Female
  Weight: 67 kg

DRUGS (2)
  1. NOVOTHYROX [Suspect]
     Active Substance: LEVOTHYROXINE SODIUM
     Route: 048
     Dates: start: 20170422
  2. NOVOTHYROX [Suspect]
     Active Substance: LEVOTHYROXINE SODIUM
     Indication: HYPOTHYROIDISM
     Route: 048
     Dates: start: 20170422

REACTIONS (13)
  - Visual acuity reduced [Recovered/Resolved]
  - Libido decreased [Not Recovered/Not Resolved]
  - Myalgia [Recovered/Resolved]
  - Dry mouth [Recovered/Resolved]
  - Headache [Recovered/Resolved]
  - Product formulation issue [Recovered/Resolved]
  - Insomnia [Recovered/Resolved]
  - Hypertension [Recovered/Resolved]
  - Vulvovaginal dryness [Recovered/Resolved]
  - Blood thyroid stimulating hormone normal [Recovered/Resolved]
  - Palpitations [Recovered/Resolved]
  - Depression [Recovered/Resolved]
  - Diffuse alopecia [Recovered/Resolved]

NARRATIVE: CASE EVENT DATE: 201705
